FAERS Safety Report 8844185 (Version 1)
Quarter: 2012Q4

REPORT INFORMATION
  Report Type: Report from Study
  Country: JP (occurrence: JP)
  Receive Date: 20121016
  Receipt Date: 20121016
  Transmission Date: 20130627
  Serious: Yes (Hospitalization)
  Sender: FDA-Public Use
  Company Number: JP-009507513-2012SP028336

PATIENT
  Age: 59 Year
  Sex: Male
  Weight: 81 kg

DRUGS (16)
  1. PEGINTRON [Suspect]
     Indication: HEPATITIS C
     Dosage: 120 Microgram, qw
     Route: 058
     Dates: start: 20120307, end: 20120404
  2. PEGINTRON [Suspect]
     Dosage: 80 Microgram, qw
     Route: 058
     Dates: start: 20120405
  3. REBETOL [Suspect]
     Indication: HEPATITIS C
     Dosage: 1000 mg, QD
     Route: 048
     Dates: start: 20120307, end: 20120309
  4. REBETOL [Suspect]
     Dosage: 800 mg, QD
     Route: 048
     Dates: start: 20120310, end: 20120316
  5. REBETOL [Suspect]
     Dosage: 600 mg, QD
     Route: 048
     Dates: start: 20120317
  6. TELAVIC [Suspect]
     Indication: HEPATITIS C
     Dosage: 2250 mg, QD, cumulative dose6750 mg
     Route: 048
     Dates: start: 20120307, end: 20120404
  7. TELAVIC [Suspect]
     Dosage: 1500 mg, QD, cumulative dose:6750 mg
     Route: 048
     Dates: start: 20120405, end: 20120530
  8. RIBALL [Concomitant]
     Indication: HYPERURICAEMIA
     Dosage: FORMULATION: POR
     Route: 048
  9. SULPIRIDE [Concomitant]
     Indication: DECREASED APPETITE
     Dosage: FORMULATION: POR
     Route: 048
     Dates: start: 20120405
  10. ALLELOCK [Concomitant]
     Indication: RASH
     Dosage: Formulation: POR
     Route: 048
     Dates: start: 20120310
  11. PREDNISOLONE [Concomitant]
     Indication: RASH
     Dosage: Gradually reduced from 30mg; Formulation: POR
     Route: 048
     Dates: start: 20120311, end: 20120316
  12. PREDNISOLONE [Concomitant]
     Dosage: 25 mg, qd. Formulation: POR
     Route: 048
     Dates: start: 20120317, end: 20120321
  13. PREDNISOLONE [Concomitant]
     Dosage: 20 mg, Formulation: POR
     Route: 048
     Dates: start: 20120322, end: 20120325
  14. PREDNISOLONE [Concomitant]
     Dosage: 15 mg, qd. Formulation:POR
     Route: 048
     Dates: start: 20120326, end: 20120329
  15. PREDNISOLONE [Concomitant]
     Dosage: 10 mg, qd; Formulation: POR
     Route: 048
     Dates: start: 20120330, end: 20120412
  16. PREDNISOLONE [Concomitant]
     Dosage: 5 mg, qd; Formulation: POR
     Route: 048
     Dates: start: 20120413, end: 20120420

REACTIONS (1)
  - Rash [Recovering/Resolving]
